FAERS Safety Report 4723286-2 (Version None)
Quarter: 2005Q3

REPORT INFORMATION
  Report Type: 
  Country: None (occurrence: None)
  Receive Date: 20050719
  Receipt Date: 20041013
  Transmission Date: 20060218
  Serious: Yes (Hospitalization)
  Sender: FDA-Public Use
  Company Number: 206212

PATIENT
  Age: 58 Year
  Sex: Male
  Weight: 104.7809 kg

DRUGS (6)
  1. AVONEX [Suspect]
     Indication: MULTIPLE SCLEROSIS
     Dosage: 30 UG; QW; IM
     Route: 030
     Dates: end: 20040101
  2. AVONEX [Suspect]
     Indication: MULTIPLE SCLEROSIS
     Dosage: 30 UG; QW; IM
     Route: 030
     Dates: start: 20040101
  3. BACLOFEN [Concomitant]
  4. AMANTADINE [Concomitant]
  5. CLONAZEPAM [Concomitant]
  6. 4 AMINOPYRIDINE [Concomitant]

REACTIONS (15)
  - AMNESIA [None]
  - BACK PAIN [None]
  - BLOOD CHOLESTEROL INCREASED [None]
  - EYE IRRITATION [None]
  - FALL [None]
  - FLUID RETENTION [None]
  - INTERVERTEBRAL DISC PROTRUSION [None]
  - MULTIPLE SCLEROSIS RELAPSE [None]
  - MUSCLE SPASTICITY [None]
  - MYALGIA [None]
  - NECK PAIN [None]
  - NEUROPATHY PERIPHERAL [None]
  - PAIN IN EXTREMITY [None]
  - SEASONAL ALLERGY [None]
  - WEIGHT INCREASED [None]
